FAERS Safety Report 21572813 (Version 3)
Quarter: 2023Q1

REPORT INFORMATION
  Report Type: Spontaneous
  Country: US (occurrence: US)
  Receive Date: 20221109
  Receipt Date: 20230329
  Transmission Date: 20230418
  Serious: No
  Sender: FDA-Public Use
  Company Number: US-PFIZER INC-PV202200020895

PATIENT
  Age: 70 Year
  Sex: Female

DRUGS (1)
  1. RETACRIT [Suspect]
     Active Substance: EPOETIN ALFA-EPBX
     Dosage: 8000 IU

REACTIONS (5)
  - Product dispensing error [Unknown]
  - Off label use [Unknown]
  - Blood test abnormal [Unknown]
  - Prescribed overdose [Unknown]
  - Hypoacusis [Unknown]
